FAERS Safety Report 18045803 (Version 1)
Quarter: 2020Q3

REPORT INFORMATION
  Report Type: Spontaneous
  Country: US (occurrence: US)
  Receive Date: 20200720
  Receipt Date: 20200720
  Transmission Date: 20201103
  Serious: Yes (Other)
  Sender: FDA-Public Use
  Company Number: US-TARO-2020TAR01218

PATIENT

DRUGS (1)
  1. AMMONIUM LACTATE CREAM (BASE) 12% [Suspect]
     Active Substance: AMMONIUM LACTATE
     Indication: DRY SKIN
     Dosage: 1?2 TIMES A DAY
     Route: 061
     Dates: start: 202003

REACTIONS (6)
  - Urticaria [Not Recovered/Not Resolved]
  - Pain in extremity [Not Recovered/Not Resolved]
  - Illness [Unknown]
  - Erythema [Not Recovered/Not Resolved]
  - Burning sensation [Not Recovered/Not Resolved]
  - Scab [Not Recovered/Not Resolved]

NARRATIVE: CASE EVENT DATE: 202003
